FAERS Safety Report 9495062 (Version 3)
Quarter: 2017Q2

REPORT INFORMATION
  Report Type: Spontaneous
  Country: HK (occurrence: HK)
  Receive Date: 20130903
  Receipt Date: 20170630
  Transmission Date: 20170830
  Serious: Yes (Death)
  Sender: FDA-Public Use
  Company Number: HK-BAYER-2013-105873

PATIENT
  Age: 45 Year
  Sex: Female
  Weight: 64 kg

DRUGS (2)
  1. FERROUS SULFATE. [Concomitant]
     Active Substance: FERROUS SULFATE
     Dosage: 300 MG, UNK
  2. YASMIN [Suspect]
     Active Substance: DROSPIRENONE\ETHINYL ESTRADIOL
     Indication: CONTRACEPTION
     Dosage: UNK
     Route: 048
     Dates: start: 20031215

REACTIONS (17)
  - Lethargy [Fatal]
  - Anaemia [None]
  - Dyspnoea [Fatal]
  - Circulatory collapse [Fatal]
  - Palpitations [Fatal]
  - Fatigue [None]
  - Menorrhagia [Recovered/Resolved]
  - Pulmonary embolism [Fatal]
  - Exercise tolerance decreased [Fatal]
  - Cough [Fatal]
  - Tachycardia [Fatal]
  - Vena cava thrombosis [Fatal]
  - Dysmenorrhoea [Recovered/Resolved]
  - Tremor [Fatal]
  - Dyspnoea exertional [Fatal]
  - Pallor [None]
  - Uterine leiomyoma [None]

NARRATIVE: CASE EVENT DATE: 2011
